FAERS Safety Report 13354257 (Version 1)
Quarter: 2017Q1

REPORT INFORMATION
  Report Type: Spontaneous
  Country: CH (occurrence: CH)
  Receive Date: 20170321
  Receipt Date: 20170321
  Transmission Date: 20170429
  Serious: Yes (Hospitalization)
  Sender: FDA-Public Use
  Company Number: CH-TEVA-748489ISR

PATIENT
  Age: 58 Year
  Sex: Male

DRUGS (2)
  1. VENLAFAXINE [Suspect]
     Active Substance: VENLAFAXINE HYDROCHLORIDE
     Indication: BIPOLAR DISORDER
     Dosage: FORM OF ADMIN. UNSPECIFIED
     Route: 065
     Dates: start: 2014, end: 20160520
  2. TRITTICO [Suspect]
     Active Substance: TRAZODONE HYDROCHLORIDE
     Indication: BIPOLAR DISORDER
     Dosage: 200 MILLIGRAM DAILY; FORM OF ADMIN. UNSPECIFIED
     Route: 065
     Dates: start: 2015

REACTIONS (10)
  - Insomnia [Recovered/Resolved]
  - Euphoric mood [Recovered/Resolved]
  - Logorrhoea [Recovered/Resolved]
  - Grandiosity [Recovered/Resolved]
  - Energy increased [Recovered/Resolved]
  - Irritability [Recovered/Resolved]
  - Hypomania [Recovered/Resolved]
  - Derailment [Recovered/Resolved]
  - Flat affect [Recovered/Resolved]
  - Disinhibition [Recovered/Resolved]

NARRATIVE: CASE EVENT DATE: 20160423
